FAERS Safety Report 17370884 (Version 1)
Quarter: 2020Q1

REPORT INFORMATION
  Report Type: Spontaneous
  Country: AU (occurrence: AU)
  Receive Date: 20200205
  Receipt Date: 20200205
  Transmission Date: 20200409
  Serious: Yes (Hospitalization)
  Sender: FDA-Public Use
  Company Number: AU-LEADING PHARMA LLC-AU-2020LEALIT00016

PATIENT
  Age: 47 Year
  Sex: Female

DRUGS (2)
  1. FUROSEMIDE TABLETS USP [Suspect]
     Active Substance: FUROSEMIDE
  2. PREDNISONE. [Suspect]
     Active Substance: PREDNISONE

REACTIONS (4)
  - Fluid overload [Unknown]
  - Product use in unapproved indication [Unknown]
  - Oedema peripheral [Unknown]
  - Exposure during pregnancy [Unknown]
